FAERS Safety Report 8758873 (Version 2)
Quarter: 2012Q4

REPORT INFORMATION
  Report Type: 
  Country: US (occurrence: US)
  Receive Date: 20120829
  Receipt Date: 20121015
  Transmission Date: 20130627
  Serious: Yes (Hospitalization, Other)
  Sender: FDA-Public Use
  Company Number: PHEH2012US016764

PATIENT
  Age: 64 None
  Sex: Male
  Weight: 179 kg

DRUGS (5)
  1. ZOMETA [Suspect]
     Indication: MULTIPLE MYELOMA
     Dosage: 3.3 mg, QMO
     Route: 042
     Dates: start: 20080904, end: 20120217
  2. REVLIMID [Concomitant]
     Dosage: 10 mg, QOD
     Route: 048
     Dates: end: 201208
  3. VELCADE [Concomitant]
     Dosage: 3 mg, monthly
     Route: 042
     Dates: start: 201107, end: 201112
  4. VELCADE [Concomitant]
     Dosage: 2.6 mg
  5. THALIDOMIDE [Concomitant]
     Dosage: UNK
     Route: 048
     Dates: start: 201008, end: 201011

REACTIONS (6)
  - Osteonecrosis of jaw [Recovering/Resolving]
  - Pain in jaw [Unknown]
  - Sepsis [Unknown]
  - Night sweats [Unknown]
  - Pyrexia [Unknown]
  - Chills [Unknown]
